FAERS Safety Report 7412823-5 (Version None)
Quarter: 2011Q2

REPORT INFORMATION
  Report Type: 
  Country: None (occurrence: None)
  Receive Date: 20110413
  Receipt Date: 20110405
  Transmission Date: 20111010
  Serious: Yes (Hospitalization)
  Sender: FDA-Public Use
  Company Number: B0711389A

PATIENT
  Sex: Female
  Weight: 46 kg

DRUGS (7)
  1. TYKERB [Suspect]
     Dosage: 1000MG PER DAY
     Route: 048
     Dates: start: 20100909
  2. XELODA [Suspect]
     Dosage: 1200MG PER DAY
     Route: 048
     Dates: start: 20100218
  3. STARSIS [Concomitant]
     Indication: DIABETES MELLITUS
     Route: 048
  4. TYKERB [Suspect]
     Indication: BREAST CANCER
     Dosage: 1250MG PER DAY
     Route: 048
     Dates: start: 20100218, end: 20100908
  5. XELODA [Suspect]
     Dosage: 1800MG PER DAY
     Route: 048
     Dates: start: 20100304
  6. ZOMETA [Concomitant]
     Route: 042
     Dates: start: 20060713
  7. AMARYL [Concomitant]
     Indication: DIABETES MELLITUS
     Route: 048

REACTIONS (1)
  - PNEUMONIA [None]
